FAERS Safety Report 17710286 (Version 1)
Quarter: 2020Q2

REPORT INFORMATION
  Report Type: Spontaneous
  Country: US (occurrence: US)
  Receive Date: 20200427
  Receipt Date: 20200427
  Transmission Date: 20200714
  Serious: Yes (Other)
  Sender: FDA-Public Use
  Company Number: US-SA-2020SA106367

PATIENT
  Age: 63 Year
  Sex: Female

DRUGS (3)
  1. ASPIRINE [Suspect]
     Active Substance: ASPIRIN
     Dosage: UNK
  2. PLAVIX [Suspect]
     Active Substance: CLOPIDOGREL BISULFATE
     Dosage: UNK
  3. ELIQUIS [Suspect]
     Active Substance: APIXABAN
     Indication: CARDIAC FAILURE CONGESTIVE
     Dosage: UNK

REACTIONS (3)
  - Contusion [Not Recovered/Not Resolved]
  - Haemorrhage [Recovered/Resolved]
  - Intentional product use issue [Unknown]
